FAERS Safety Report 7222290-2 (Version None)
Quarter: 2011Q1

REPORT INFORMATION
  Report Type: 
  Country: None (occurrence: None)
  Receive Date: 20110112
  Receipt Date: 20110111
  Transmission Date: 20110831
  Serious: Yes (Other)
  Sender: FDA-Public Use
  Company Number: GR-BRISTOL-MYERS SQUIBB COMPANY-15436140

PATIENT
  Age: 71 Year
  Sex: Female
  Weight: 85 kg

DRUGS (6)
  1. FUROSEMIDE [Concomitant]
     Indication: HYPERTENSION
     Route: 048
     Dates: start: 19950101
  2. SIMVASTATIN [Concomitant]
     Indication: HYPERLIPIDAEMIA
     Dosage: 20MG
     Route: 048
     Dates: start: 20050101
  3. APROVEL TABS [Concomitant]
     Indication: HYPERTENSION
     Dosage: STARTED MANY YRS AGO
     Route: 048
  4. NEXIUM [Concomitant]
     Indication: GASTROOESOPHAGEAL REFLUX DISEASE
     Dosage: GR TABS, STARTED MANY YRS AGO
     Route: 048
  5. ONGLYZA [Suspect]
     Indication: DIABETES MELLITUS
     Route: 048
     Dates: start: 20101006, end: 20101206
  6. LEVOTHYROXINE [Concomitant]
     Indication: HYPOTHYROIDISM
     Dosage: TABS, STARTED MANY YRS AGO
     Route: 048

REACTIONS (1)
  - PANCREATITIS ACUTE [None]
